FAERS Safety Report 23845758 (Version 2)
Quarter: 2024Q2

REPORT INFORMATION
  Report Type: Spontaneous
  Country: US (occurrence: US)
  Receive Date: 20240512
  Receipt Date: 20240521
  Transmission Date: 20240716
  Serious: No
  Sender: FDA-Public Use
  Company Number: US-SA-SAC20240508000680

PATIENT
  Age: 64 Year
  Sex: Male

DRUGS (1)
  1. DUPIXENT [Suspect]
     Active Substance: DUPILUMAB
     Indication: Nasal polyps
     Dosage: 300 MG, QOW
     Route: 058

REACTIONS (7)
  - Fatigue [Unknown]
  - Arthritis [Unknown]
  - Visual impairment [Unknown]
  - Neck pain [Unknown]
  - Back pain [Unknown]
  - Dry eye [Unknown]
  - Arthralgia [Unknown]
